FAERS Safety Report 21622853 (Version 1)
Quarter: 2022Q4

REPORT INFORMATION
  Report Type: Spontaneous
  Country: US (occurrence: US)
  Receive Date: 20221121
  Receipt Date: 20221121
  Transmission Date: 20230113
  Serious: No
  Sender: FDA-Public Use
  Company Number: US-BIOVITRUM-2022US13292

PATIENT
  Sex: Male
  Weight: 4 kg

DRUGS (4)
  1. SYNAGIS [Suspect]
     Active Substance: PALIVIZUMAB
     Indication: Hypoplastic left heart syndrome
  2. SYNAGIS [Suspect]
     Active Substance: PALIVIZUMAB
     Indication: Routine health maintenance
  3. SYNAGIS [Suspect]
     Active Substance: PALIVIZUMAB
     Indication: Renal dysplasia
  4. SYNAGIS [Suspect]
     Active Substance: PALIVIZUMAB
     Indication: Laryngeal stenosis

REACTIONS (1)
  - Heart valve stenosis [Unknown]
